FAERS Safety Report 8773211 (Version 2)
Quarter: 2013Q2

REPORT INFORMATION
  Report Type: Report from Study
  Country: JP (occurrence: JP)
  Receive Date: 20120907
  Receipt Date: 20130501
  Transmission Date: 20140414
  Serious: Yes (Other)
  Sender: FDA-Public Use
  Company Number: JP-VERTEX PHARMACEUTICAL INC.-2012-020674

PATIENT
  Age: 63 Year
  Sex: Female

DRUGS (12)
  1. VX-950 (TELAPREVIR) [Suspect]
     Indication: CHRONIC HEPATITIS C
     Dosage: 2250 MG, QD
     Route: 048
     Dates: start: 20120207, end: 20120305
  2. VX-950 (TELAPREVIR) [Suspect]
     Dosage: 1500 MG, QD
     Route: 048
     Dates: start: 20120306, end: 20120430
  3. RIBAVIRIN [Suspect]
     Indication: CHRONIC HEPATITIS C
     Dosage: 600 MG, QD
     Route: 048
     Dates: start: 20120207, end: 20120321
  4. RIBAVIRIN [Suspect]
     Dosage: 400 MG, QD
     Route: 048
     Dates: start: 20120322, end: 20120528
  5. RIBAVIRIN [Suspect]
     Dosage: 600 MG, QD
     Route: 048
     Dates: start: 20120529, end: 20120723
  6. PEGINTRON [Suspect]
     Indication: CHRONIC HEPATITIS C
     Dosage: 1.5 ?G/KG, QW
     Route: 058
     Dates: start: 20120207, end: 20120724
  7. ZESTROMIN [Concomitant]
     Dosage: 0.25 MG, QD
     Route: 048
     Dates: start: 20120508, end: 20120625
  8. PARIET [Concomitant]
     Dosage: 10 MG, QD
     Route: 048
  9. GASMOTIN [Concomitant]
     Dosage: 15 MG, QD
     Route: 048
     Dates: end: 20120723
  10. BETAMAC [Concomitant]
     Dosage: 150 MG, QD
     Route: 048
  11. SENNARIDE [Concomitant]
     Dosage: 24 MG, QD
     Route: 048
     Dates: end: 20120723
  12. SEDEKOPAN [Concomitant]
     Dosage: 1.5 MG, QD
     Route: 048
     Dates: end: 20120507

REACTIONS (1)
  - White blood cell count decreased [Recovered/Resolved]
